FAERS Safety Report 4993601-3 (Version None)
Quarter: 2006Q2

REPORT INFORMATION
  Report Type: 
  Country: None (occurrence: None)
  Receive Date: 20060505
  Receipt Date: 20060428
  Transmission Date: 20061013
  Serious: Yes (Death)
  Sender: FDA-Public Use
  Company Number: PHEH2006US05584

PATIENT
  Sex: Male

DRUGS (2)
  1. SANDOSTATIN LAR [Suspect]
     Indication: CARCINOID SYNDROME
     Dates: end: 20050101
  2. SANDOSTATIN [Suspect]
     Indication: CARCINOID SYNDROME
     Dates: start: 20000901

REACTIONS (3)
  - DISEASE PROGRESSION [None]
  - HEPATIC CIRRHOSIS [None]
  - MALAISE [None]
